FAERS Safety Report 25205184 (Version 1)
Quarter: 2025Q2

REPORT INFORMATION
  Report Type: Spontaneous
  Country: NO (occurrence: NO)
  Receive Date: 20250417
  Receipt Date: 20250417
  Transmission Date: 20250716
  Serious: Yes (Other)
  Sender: UCB
  Company Number: None

PATIENT
  Age: 54 Year
  Sex: Male

DRUGS (1)
  1. CIMZIA [Suspect]
     Active Substance: CERTOLIZUMAB PEGOL
     Indication: Ankylosing spondylitis
     Dosage: CONTINUED USE OF MEDICINAL PRODUCT
     Route: 058
     Dates: start: 20130101

REACTIONS (4)
  - Tooth injury [Not Recovered/Not Resolved]
  - Tooth extraction [Not Recovered/Not Resolved]
  - Poor dental condition [Not Recovered/Not Resolved]
  - Teeth brittle [Not Recovered/Not Resolved]
